FAERS Safety Report 12890207 (Version 1)
Quarter: 2016Q4

REPORT INFORMATION
  Report Type: Spontaneous
  Country: US (occurrence: US)
  Receive Date: 20161027
  Receipt Date: 20161027
  Transmission Date: 20170207
  Serious: Yes (Death)
  Sender: FDA-Public Use
  Company Number: US-LPDUSPRD-20160956

PATIENT
  Age: 31 Year
  Sex: Female
  Weight: 85 kg

DRUGS (3)
  1. LACTATED RINGERS [Concomitant]
     Active Substance: CALCIUM CHLORIDE\POTASSIUM CHLORIDE\SODIUM CHLORIDE\SODIUM LACTATE
     Dosage: UNKNOWN
     Route: 042
  2. ASCORBIC ACID INJECTION, USP (0206-50K) [Suspect]
     Active Substance: ASCORBIC ACID
     Dosage: 66 MG/KG/HR (TOTAL 101G)
     Route: 042
  3. ALBUMIN [Concomitant]
     Active Substance: ALBUMIN HUMAN
     Dosage: 0.4 ML/KG/%TBSA/24 HOURS
     Route: 042

REACTIONS (9)
  - Hypotension [Unknown]
  - Hyperoxaluria [Unknown]
  - Nephropathy [Unknown]
  - Off label use [Unknown]
  - Acute kidney injury [Unknown]
  - Brain oedema [Unknown]
  - Death [Fatal]
  - Atrioventricular block [Unknown]
  - Pulseless electrical activity [Unknown]
